FAERS Safety Report 18534821 (Version 1)
Quarter: 2020Q4

REPORT INFORMATION
  Report Type: Other
  Country: US (occurrence: US)
  Receive Date: 20201123
  Receipt Date: 20201123
  Transmission Date: 20210114
  Serious: Yes (Other)
  Sender: FDA-Public Use
  Company Number: US-KNIGHT THERAPEUTICS (USA) INC.-2096187

PATIENT
  Age: 43 Year
  Sex: Female
  Weight: 66 kg

DRUGS (3)
  1. IMPAVIDO [Suspect]
     Active Substance: MILTEFOSINE
     Indication: CUTANEOUS LEISHMANIASIS
  2. ONDANSETRON [Concomitant]
     Active Substance: ONDANSETRON
  3. IMIQUIMOD. [Concomitant]
     Active Substance: IMIQUIMOD

REACTIONS (12)
  - Alanine aminotransferase increased [Recovered/Resolved]
  - Nausea [Recovered/Resolved]
  - Dizziness [Recovered/Resolved]
  - Decreased appetite [Recovered/Resolved]
  - Abdominal pain [Recovered/Resolved]
  - Myalgia [Recovered/Resolved]
  - Fatigue [Recovered/Resolved]
  - Vomiting [Recovered/Resolved]
  - Depression [Recovered/Resolved]
  - Aspartate aminotransferase increased [Recovered/Resolved]
  - Off label use [Recovered/Resolved]
  - Therapy cessation [Recovered/Resolved]
